FAERS Safety Report 11229604 (Version 3)
Quarter: 2015Q3

REPORT INFORMATION
  Report Type: Report from Study
  Country: US (occurrence: US)
  Receive Date: 20150630
  Receipt Date: 20150825
  Transmission Date: 20151125
  Serious: Yes (Death, Hospitalization, Other)
  Sender: FDA-Public Use
  Company Number: US-BRISTOL-MYERS SQUIBB COMPANY-BMS-2015-040890

PATIENT
  Age: 67 Year
  Sex: Male

DRUGS (1)
  1. BELATACEPT [Suspect]
     Active Substance: BELATACEPT
     Indication: RENAL TRANSPLANT
     Dosage: UNK
     Route: 065
     Dates: start: 20150604, end: 20150616

REACTIONS (4)
  - Endotracheal intubation [Unknown]
  - Atelectasis [Unknown]
  - Asthma [Fatal]
  - Mouth haemorrhage [Unknown]

NARRATIVE: CASE EVENT DATE: 20150609
